FAERS Safety Report 7488895-9 (Version None)
Quarter: 2011Q2

REPORT INFORMATION
  Report Type: 
  Country: None (occurrence: None)
  Receive Date: 20110518
  Receipt Date: 20110505
  Transmission Date: 20111010
  Serious: Yes (Hospitalization, Other)
  Sender: FDA-Public Use
  Company Number: AR-UCBSA-8054907

PATIENT
  Sex: Female
  Weight: 73.5 kg

DRUGS (14)
  1. CIMZIA [Suspect]
     Dosage: - NR OF DOSES :32
     Route: 058
     Dates: start: 20060823, end: 20071114
  2. CIMZIA [Suspect]
     Dosage: - NR OF DOSES :23
     Route: 058
     Dates: start: 20071128, end: 20091222
  3. METHOTREXATE [Concomitant]
     Indication: RHEUMATOID ARTHRITIS
     Route: 048
     Dates: start: 20050101
  4. LEVOFLOXACIN [Concomitant]
     Indication: DIABETIC FOOT INFECTION
     Route: 048
     Dates: start: 20091112, end: 20091126
  5. CORITENSIL [Concomitant]
     Indication: RHEUMATOID ARTHRITIS
     Route: 048
     Dates: start: 20030101
  6. INDOMETACINA [Concomitant]
     Indication: RHEUMATOID ARTHRITIS
     Route: 048
     Dates: start: 20090303, end: 20091118
  7. ENALAPRIL MALEATE [Concomitant]
     Indication: HYPERTENSION
     Route: 048
     Dates: start: 20030101
  8. FOLIC ACID [Concomitant]
     Indication: SUPPLEMENTATION THERAPY
     Route: 048
     Dates: start: 20050101
  9. CIMZIA [Suspect]
     Indication: RHEUMATOID ARTHRITIS
     Route: 058
     Dates: start: 20050825, end: 20060809
  10. ASPIRIN [Concomitant]
     Indication: HYPERTENSION
     Route: 048
     Dates: start: 20070101
  11. GLYBURIDE [Concomitant]
     Indication: DIABETES MELLITUS
     Route: 048
     Dates: start: 20090722, end: 20091117
  12. DBI AP METFORMIN [Concomitant]
     Indication: DIABETES MELLITUS
     Route: 048
     Dates: start: 20060720, end: 20091117
  13. IRUXOL [Concomitant]
     Indication: DIABETIC FOOT
     Dosage: 1 APPLICATION TWICE DAILY
     Route: 061
     Dates: start: 20090429, end: 20091118
  14. MINOCYCLINE HCL [Concomitant]
     Indication: DIABETIC FOOT INFECTION
     Route: 048
     Dates: start: 20091028, end: 20091126

REACTIONS (3)
  - HYPOGLYCAEMIA [None]
  - ESCHERICHIA INFECTION [None]
  - WOUND INFECTION STAPHYLOCOCCAL [None]
